FAERS Safety Report 19811014 (Version 1)
Quarter: 2021Q3

REPORT INFORMATION
  Report Type: Report from Study
  Country: None (occurrence: US)
  Receive Date: 20210910
  Receipt Date: 20210910
  Transmission Date: 20211014
  Serious: Yes (Other)
  Sender: FDA-Public Use
  Company Number: US-ABBVIE-21K-163-4070473-00

PATIENT
  Sex: Male

DRUGS (2)
  1. VENCLEXTA [Suspect]
     Active Substance: VENETOCLAX
     Indication: ACUTE MYELOID LEUKAEMIA
     Dosage: 70 MILLIGRAMS ONCE DAILY FOR 14 DAYS ON, 14 DAYS OFF
     Route: 048
     Dates: start: 20210419, end: 20210907
  2. VENCLEXTA [Suspect]
     Active Substance: VENETOCLAX
     Route: 048

REACTIONS (2)
  - Muscular weakness [Unknown]
  - Terminal state [Unknown]

NARRATIVE: CASE EVENT DATE: 2021
